FAERS Safety Report 20477935 (Version 1)
Quarter: 2022Q1

REPORT INFORMATION
  Report Type: Spontaneous
  Country: US (occurrence: US)
  Receive Date: 20220216
  Receipt Date: 20220216
  Transmission Date: 20220423
  Serious: No
  Sender: FDA-Public Use
  Company Number: US-SANOFI-00969324

PATIENT
  Sex: Female
  Weight: 170 kg

DRUGS (1)
  1. LOVENOX [Suspect]
     Active Substance: ENOXAPARIN SODIUM

REACTIONS (1)
  - Knee operation [Unknown]
